FAERS Safety Report 7490088-6 (Version None)
Quarter: 2011Q2

REPORT INFORMATION
  Report Type: 
  Country: None (occurrence: None)
  Receive Date: 20110519
  Receipt Date: 20110516
  Transmission Date: 20111010
  Serious: Yes (Death, Other)
  Sender: FDA-Public Use
  Company Number: US-ASTRAZENECA-2009UW20142

PATIENT
  Age: 3071 Day
  Sex: Female

DRUGS (4)
  1. SEROQUEL [Suspect]
     Indication: SOMNAMBULISM
     Route: 048
     Dates: start: 20071008
  2. CONCERTA [Concomitant]
     Indication: ATTENTION DEFICIT/HYPERACTIVITY DISORDER
     Dosage: 5 MG - 36 MG DAILY
     Route: 048
     Dates: start: 20080310
  3. LORATADINE [Concomitant]
     Indication: HYPERSENSITIVITY
     Dosage: 5MG/5 ML 1.5 TSP QD
     Dates: start: 20080226
  4. SEROQUEL [Suspect]
     Dosage: 100 MG ONE AND HALF TAB QHS
     Route: 048
     Dates: start: 20080310

REACTIONS (6)
  - PANCREATITIS [None]
  - DEATH [None]
  - NEUROPATHY PERIPHERAL [None]
  - KETOACIDOSIS [None]
  - TYPE 2 DIABETES MELLITUS [None]
  - TYPE 1 DIABETES MELLITUS [None]
